FAERS Safety Report 12165564 (Version 5)
Quarter: 2016Q3

REPORT INFORMATION
  Report Type: Spontaneous
  Country: GB (occurrence: GB)
  Receive Date: 20160309
  Receipt Date: 20160801
  Transmission Date: 20161109
  Serious: Yes (Hospitalization)
  Sender: FDA-Public Use
  Company Number: GB-WATSON-2016-04155

PATIENT
  Age: 67 Year
  Sex: Female
  Weight: 93 kg

DRUGS (84)
  1. AMLODIPINE [Concomitant]
     Active Substance: AMLODIPINE BESYLATE
     Indication: HYPERTENSION
     Dosage: 2.5 MG, DAILY (DOSAGE FORM: UNSPECIFIED)
     Route: 048
     Dates: start: 2005, end: 20151207
  2. ATORVASTATIN [Concomitant]
     Active Substance: ATORVASTATIN
     Indication: HYPERCHOLESTEROLAEMIA
     Dosage: 40 MG, DAILY (DOSAGE FORM: UNSPECIFIED)
     Route: 048
     Dates: start: 2005, end: 20151207
  3. CIPROFLOXACIN. [Concomitant]
     Active Substance: CIPROFLOXACIN
     Indication: INFECTION PROPHYLAXIS
     Dosage: 500 MG, BID (DOSAGE FORM: UNSPECIFIED)
     Route: 048
     Dates: start: 20151113
  4. CO-DYDRAMOL [Concomitant]
     Active Substance: ACETAMINOPHEN\DIHYDROCODEINE
     Indication: BACK PAIN
     Dosage: UNK, PRN (DOSAGE FORM: UNSPECIFIED)
     Route: 048
     Dates: start: 20151114
  5. FLUCONAZOLE. [Concomitant]
     Active Substance: FLUCONAZOLE
     Indication: BACK PAIN
     Dosage: 1 G, QID
     Route: 048
     Dates: start: 20151204
  6. LEVOTHYROXINE SODIUM. [Concomitant]
     Active Substance: LEVOTHYROXINE SODIUM
     Indication: PROPHYLAXIS
     Dosage: 50 MG, UNKNOWN (DOSAGE FORM: UNSPECIFIED)
     Route: 048
     Dates: start: 1995
  7. METFORMIN [Concomitant]
     Active Substance: METFORMIN HYDROCHLORIDE
     Dosage: 500 MG, DAILY
     Route: 048
     Dates: start: 20160213
  8. OMEPRAZOLE. [Concomitant]
     Active Substance: OMEPRAZOLE
     Indication: ANTACID THERAPY
     Dosage: 20 MG, DAILY (DOSAGE FORM: UNSPECIFIED)
     Route: 048
     Dates: start: 2011
  9. CARBOCISTEINE [Concomitant]
     Active Substance: CARBOCYSTEINE
     Indication: PROPHYLAXIS
     Dosage: 750 MG, TID
     Route: 050
     Dates: start: 20160207, end: 20160405
  10. HYDROCORTISONE. [Concomitant]
     Active Substance: HYDROCORTISONE
     Indication: ECZEMA
     Dosage: 50 MG, BID
     Route: 042
     Dates: start: 20160212
  11. INSULIN [Concomitant]
     Active Substance: INSULIN NOS
     Dosage: UNK
     Route: 042
  12. VELCADE [Suspect]
     Active Substance: BORTEZOMIB
     Dosage: 2.6 MG, UNKNOWN,(DOSAGE FORM: LYOPHILIZED POWDER, CYCLE 1 DAY 11)
     Route: 058
     Dates: start: 20151112, end: 20151112
  13. VELCADE [Suspect]
     Active Substance: BORTEZOMIB
     Dosage: 2.6 MG, UNKNOWN, (DOSAGE FORM: LYOPHILIZED POWDER, CYCLE 1 DAY 4)
     Route: 058
     Dates: start: 20151105, end: 20151105
  14. VELCADE [Suspect]
     Active Substance: BORTEZOMIB
     Dosage: 2.6 MG, UNKNOWN,(DOSAGE FORM: LYOPHILIZED POWDER, CYCLE 1 DAY 8)
     Route: 058
     Dates: start: 20151109, end: 20151109
  15. FILGRASTIM [Concomitant]
     Active Substance: FILGRASTIM
     Indication: NEUTROPENIA
     Dosage: 480 ?G, DAILY (DOSAGE FORM: UNSPECIFIED)
     Route: 058
     Dates: start: 20151113, end: 20151118
  16. FOLIC ACID. [Concomitant]
     Active Substance: FOLIC ACID
     Indication: PROPHYLAXIS
  17. FUROSEMIDE. [Concomitant]
     Active Substance: FUROSEMIDE
     Indication: PERIPHERAL SWELLING
     Dosage: 40 MG, UNKNOWN
     Route: 042
     Dates: start: 20160111, end: 20160111
  18. FUROSEMIDE. [Concomitant]
     Active Substance: FUROSEMIDE
     Dosage: 40 MG, BID
     Route: 048
     Dates: start: 20150129, end: 20160229
  19. FUROSEMIDE. [Concomitant]
     Active Substance: FUROSEMIDE
     Dosage: 40 MG, DAILY
     Route: 048
     Dates: start: 20160112, end: 20160129
  20. HYDROXOCOBALAMIN [Concomitant]
     Active Substance: HYDROXOCOBALAMIN
     Indication: PROPHYLAXIS
  21. LOSARTAN. [Concomitant]
     Active Substance: LOSARTAN
     Indication: HYPERTENSION
     Dosage: 100 MG, DAILY (DOSAGE FORM: UNSPECIFIED)
     Route: 048
     Dates: start: 2010
  22. METFORMIN [Concomitant]
     Active Substance: METFORMIN HYDROCHLORIDE
     Indication: DIABETES MELLITUS
     Dosage: 500 MG, BID (DOSAGE FORM: UNSPECIFIED)
     Route: 048
     Dates: start: 2011, end: 20160212
  23. SENNA                              /00142201/ [Concomitant]
     Active Substance: SENNA LEAF
     Indication: CONSTIPATION
     Dosage: UNK (DOSAGE FORM: UNSPECIFIED)
     Route: 048
     Dates: start: 20151204
  24. GLUCOSE [Concomitant]
     Active Substance: DEXTROSE
     Indication: TYPE 2 DIABETES MELLITUS
     Dosage: UNK
     Route: 042
  25. SALBUTAMOL [Concomitant]
     Active Substance: ALBUTEROL
     Indication: CHRONIC OBSTRUCTIVE PULMONARY DISEASE
     Dosage: UNK
     Route: 055
  26. VELCADE [Suspect]
     Active Substance: BORTEZOMIB
     Dosage: 2.6 MG, UNKNOWN (DOSAGE FORM: LYOPHILIZED POWDER, CYCLE 3 DAY 1)
     Route: 058
     Dates: start: 20160201, end: 20160201
  27. VELCADE [Suspect]
     Active Substance: BORTEZOMIB
     Dosage: UNK, (DOSAGE FORM: LYOPHILIZED POWDER, CYCLE 3 DAY 29)
     Route: 058
     Dates: start: 20160229, end: 20160229
  28. CO-AMOXICLAV                       /00756801/ [Concomitant]
     Active Substance: AMOXICILLIN\CLAVULANIC ACID
     Indication: UPPER RESPIRATORY TRACT INFECTION
     Dosage: 625 MG, QID
     Route: 048
     Dates: start: 20151205, end: 20151212
  29. DOXYCYCLINE. [Concomitant]
     Active Substance: DOXYCYCLINE
     Indication: UPPER RESPIRATORY TRACT INFECTION
     Dosage: 100 MG, DAILY (DOSAGE FORM: UNSPECIFIED)
     Route: 048
     Dates: start: 2011
  30. LEVOTHYROXINE SODIUM. [Concomitant]
     Active Substance: LEVOTHYROXINE SODIUM
     Dosage: 75 MG, DAILY
     Route: 048
     Dates: start: 20160205
  31. MAGNESIUM GLYCEROPHOSPHATE [Concomitant]
     Active Substance: MAGNESIUM GLYCEROPHOSPHATE
     Indication: PROPHYLAXIS
  32. VITAMIN B COMPLEX [Concomitant]
     Active Substance: CYANOCOBALAMIN\DEXPANTHENOL\NIACINAMIDE\PYRIDOXINE HYDROCHLORIDE\RIBOFLAVIN 5^-PHOSPHATE SODIUM\THIAMINE HYDROCHLORIDE\VITAMIN B COMPLEX
     Indication: NEUROPATHY PERIPHERAL
     Dosage: UNK (DOSAGE FORM: UNSPECIFIED)
     Route: 048
     Dates: start: 20160129
  33. FONDAPARINUX [Concomitant]
     Active Substance: FONDAPARINUX
     Indication: PROPHYLAXIS
     Dosage: 2.5 MG, DAILY
     Route: 058
     Dates: start: 20160205, end: 20160211
  34. INSULIN [Concomitant]
     Active Substance: INSULIN NOS
     Indication: TYPE 2 DIABETES MELLITUS
     Dosage: UNK, DAILY
     Route: 042
     Dates: start: 20160204
  35. LANSOPRAZOLE. [Concomitant]
     Active Substance: LANSOPRAZOLE
     Indication: DYSPEPSIA
     Dosage: 30 MG, DAILY
     Route: 050
     Dates: start: 20160204
  36. PREDNISOLONE (UNKNOWN) [Suspect]
     Active Substance: PREDNISOLONE
     Indication: PLASMA CELL MYELOMA
     Dosage: 20 MG, UNKNOWN (DOSAGE FORM: UNSPECIFIED)
     Route: 048
     Dates: start: 20151102, end: 20160201
  37. PREDNISOLONE (UNKNOWN) [Suspect]
     Active Substance: PREDNISOLONE
     Indication: PROPHYLAXIS
     Dosage: 120 MG, UNK
     Route: 048
     Dates: start: 20160202, end: 20160204
  38. MELPHALAN [Suspect]
     Active Substance: MELPHALAN
     Dosage: 12 MG, UNK
     Route: 048
     Dates: start: 20160201, end: 20160204
  39. VELCADE [Suspect]
     Active Substance: BORTEZOMIB
     Dosage: 2.6 MG, UNKNOWN,(DOSAGE FORM: LYOPHILIZED POWDER, CYCLE 1 DAY 22)
     Route: 058
     Dates: start: 20151123, end: 20151123
  40. VELCADE [Suspect]
     Active Substance: BORTEZOMIB
     Dosage: UNK, (DOSAGE FORM: LYOPHILIZED POWDER, CYCLE 4 DAY 8)
     Route: 058
     Dates: start: 20160315
  41. ALLOPURINOL. [Concomitant]
     Active Substance: ALLOPURINOL
     Indication: PRODUCT USED FOR UNKNOWN INDICATION
     Dosage: 300 MG, DAILY
     Route: 048
     Dates: start: 20121205
  42. AMOXICILLIN. [Concomitant]
     Active Substance: AMOXICILLIN
     Indication: UPPER RESPIRATORY TRACT INFECTION
     Dosage: 250 MG, TID (DOSAGE FORM: UNSPECIFIED)
     Route: 048
     Dates: start: 20151204, end: 20151204
  43. CYCLIZINE [Concomitant]
     Active Substance: CYCLIZINE
     Indication: NAUSEA
     Dosage: 50 MG, TID (DOSAGE FORM: UNSPECIFIED)
     Route: 042
     Dates: start: 20151206, end: 20151210
  44. LEVOTHYROXINE SODIUM. [Concomitant]
     Active Substance: LEVOTHYROXINE SODIUM
     Indication: HYPOTHYROIDISM
     Dosage: 25 MG, UNKNOWN (DOSAGE FORM: UNSPECIFIED)
     Route: 048
     Dates: start: 1995
  45. ONDANSETRON [Concomitant]
     Active Substance: ONDANSETRON
     Indication: NAUSEA
     Dosage: 8 MG, TID
     Route: 042
     Dates: start: 20151206, end: 20151210
  46. OXYCONTIN [Concomitant]
     Active Substance: OXYCODONE HYDROCHLORIDE
     Indication: NEUROPATHY PERIPHERAL
     Dosage: 5 MG, BID (DOSAGE FORM: UNSPECIFIED)
     Route: 048
     Dates: start: 20160129
  47. OXYNORM [Concomitant]
     Active Substance: OXYCODONE HYDROCHLORIDE
     Indication: NEUROPATHY PERIPHERAL
     Dosage: 5 MG, PRN (DOSAGE FORM: UNSPECIFIED)
     Route: 048
     Dates: start: 20160129
  48. ZOMETA [Concomitant]
     Active Substance: ZOLEDRONIC ACID
     Indication: PLASMA CELL MYELOMA
     Dosage: 4 MG, UNKNOWN (DOSAGE FORM: UNSPECIFIED)
     Route: 042
     Dates: start: 20160131
  49. ATROVENT [Concomitant]
     Active Substance: IPRATROPIUM BROMIDE
     Indication: CHRONIC OBSTRUCTIVE PULMONARY DISEASE
     Dosage: UNK
     Route: 055
  50. PREDNISOLONE (UNKNOWN) [Suspect]
     Active Substance: PREDNISOLONE
     Indication: UPPER RESPIRATORY TRACT INFECTION
     Dosage: 5 MG PRN  (DOSAGE FORM: UNSPECIFIED)
     Route: 048
     Dates: start: 2011
  51. VELCADE [Suspect]
     Active Substance: BORTEZOMIB
     Indication: PLASMA CELL MYELOMA
     Dosage: 2.6 MG, UNKNOWN. (DOSAGE FORM: LYOPHILIZED POWDER, CYCLE 1 DAY 25)
     Route: 058
     Dates: start: 20151126, end: 20151126
  52. CO-AMOXICLAV                       /00756801/ [Concomitant]
     Active Substance: AMOXICILLIN\CLAVULANIC ACID
     Indication: PROPHYLAXIS
  53. FOLIC ACID. [Concomitant]
     Active Substance: FOLIC ACID
     Indication: MACROCYTOSIS
     Dosage: 5 MG, DAILY (DOSAGE FORM: UNSPECIFIED)
     Route: 048
     Dates: start: 20160129
  54. HYDROXOCOBALAMIN [Concomitant]
     Active Substance: HYDROXOCOBALAMIN
     Indication: MACROCYTOSIS
     Dosage: 1 MG, UNKNOWN (DOSAGE FORM: UNSPECIFIED)
     Route: 042
     Dates: start: 20160201, end: 20160201
  55. PARACETAMOL [Concomitant]
     Active Substance: ACETAMINOPHEN
     Indication: BACK PAIN
     Dosage: 1 G, QID (DOSAGE FORM: UNSPECIFIED)
     Route: 048
     Dates: start: 20151204
  56. CLONIDINE. [Concomitant]
     Active Substance: CLONIDINE
     Dosage: 750 MG, DAILY
     Route: 042
     Dates: start: 20160209
  57. LIDOCAINE. [Concomitant]
     Active Substance: LIDOCAINE
     Indication: PAIN PROPHYLAXIS
     Dosage: 1 DF, DAILY
     Route: 061
     Dates: start: 20151216, end: 20151217
  58. VELCADE [Suspect]
     Active Substance: BORTEZOMIB
     Dosage: 2.6 MG, UNKNOWN (DOSAGE FORM: LYOPHILIZED POWDER, CYCLE 2 DAY 22)
     Route: 058
     Dates: start: 20160111, end: 20160111
  59. VELCADE [Suspect]
     Active Substance: BORTEZOMIB
     Dosage: 2.6 MG, UNKNOWN,(DOSAGE FORM: LYOPHILIZED POWDER, CYCLE 1 DAY 1)
     Route: 058
     Dates: start: 20151102, end: 20151102
  60. VELCADE [Suspect]
     Active Substance: BORTEZOMIB
     Dosage: 2.6 MG, UNKNOWN, (DOSAGE FORM: LYOPHILIZED POWDER, CYCLE 2 DAY 8)
     Route: 058
     Dates: start: 20151229, end: 20151229
  61. VELCADE [Suspect]
     Active Substance: BORTEZOMIB
     Dosage: 2.6 MG, UNKNOWN (DOSAGE FORM: LYOPHILIZED POWDER, CYCLE 2 DAY 29)
     Route: 058
     Dates: start: 20160118, end: 20160118
  62. BISOPROLOL [Concomitant]
     Active Substance: BISOPROLOL
     Indication: HYPERTENSION
     Dosage: 25 MG, UNKNOWN
     Route: 048
     Dates: start: 2009, end: 20160205
  63. ONDANSETRON [Concomitant]
     Active Substance: ONDANSETRON
     Indication: PROPHYLAXIS
  64. GLUCOSE [Concomitant]
     Active Substance: DEXTROSE
     Dosage: UNK, DAILY
     Route: 042
     Dates: start: 20160204
  65. HYDROCORTISONE. [Concomitant]
     Active Substance: HYDROCORTISONE
     Dosage: 50 MG, QID
     Route: 042
     Dates: start: 20160205, end: 20160211
  66. AUGMENTIN [Concomitant]
     Active Substance: AMOXICILLIN\CLAVULANATE POTASSIUM
     Indication: PROPHYLAXIS
     Dosage: 500 MG, BID
     Route: 048
     Dates: start: 20151205, end: 20151210
  67. DARATUMUMAB [Suspect]
     Active Substance: DARATUMUMAB
     Indication: PLASMA CELL MYELOMA
     Dosage: 1420 MG, UNKNOWN (DOSAGE FORM: UNSPECIFIED)
     Route: 042
     Dates: start: 20151102, end: 20160201
  68. MELPHALAN [Suspect]
     Active Substance: MELPHALAN
     Indication: PLASMA CELL MYELOMA
     Dosage: 12 MG, UNKNOWN (DOSAGE FORM: UNSPECIFIED)
     Route: 048
     Dates: start: 20151102, end: 20160201
  69. VELCADE [Suspect]
     Active Substance: BORTEZOMIB
     Dosage: 2.6 MG, UNKNOWN (DOSAGE FORM: LYOPHILIZED POWDER, CYCLE 2 DAY 1)
     Route: 058
     Dates: start: 20151222, end: 20151222
  70. VELCADE [Suspect]
     Active Substance: BORTEZOMIB
     Dosage: UNK, (DOSAGE FORM: LYOPHILIZED POWDER, CYCLE 3 DAY 8)
     Route: 058
     Dates: start: 20160208, end: 20160208
  71. ATORVASTATIN [Concomitant]
     Active Substance: ATORVASTATIN
     Indication: PROPHYLAXIS
     Dosage: 20 MG, DAILY
     Route: 048
     Dates: start: 20160205
  72. CLARITHROMYCIN. [Concomitant]
     Active Substance: CLARITHROMYCIN
     Indication: UPPER RESPIRATORY TRACT INFECTION
     Dosage: 500 MG, BID (DOSAGE FORM: UNSPECIFIED)
     Route: 048
     Dates: start: 20151204, end: 20151210
  73. CYCLIZINE [Concomitant]
     Active Substance: CYCLIZINE
     Indication: PROPHYLAXIS
  74. MAGNESIUM GLYCEROPHOSPHATE [Concomitant]
     Active Substance: MAGNESIUM GLYCEROPHOSPHATE
     Indication: BLOOD MAGNESIUM DECREASED
     Dosage: 10 ML, BID (DOSAGE FORM: UNSPECIFIED)
     Route: 048
     Dates: start: 20160129
  75. OMEPRAZOLE. [Concomitant]
     Active Substance: OMEPRAZOLE
     Indication: GASTROOESOPHAGEAL REFLUX DISEASE
  76. ATROVENT [Concomitant]
     Active Substance: IPRATROPIUM BROMIDE
     Dosage: 500 MG, QID
     Route: 055
     Dates: start: 20160212
  77. SALBUTAMOL [Concomitant]
     Active Substance: ALBUTEROL
     Dosage: 5 MG, QID
     Route: 055
     Dates: start: 20160212
  78. VELCADE [Suspect]
     Active Substance: BORTEZOMIB
     Dosage: 2.6 MG, UNKNOWN, (DOSAGE FORM: LYOPHILIZED POWDER, CYCLE 1 DAY 29)
     Route: 058
     Dates: start: 20151130, end: 20151130
  79. VELCADE [Suspect]
     Active Substance: BORTEZOMIB
     Dosage: UNK, (DOSAGE FORM: LYOPHILIZED POWDER, CYCLE 4 DAY 1)
     Route: 058
     Dates: start: 20160309, end: 20160309
  80. ACICLOVIR [Concomitant]
     Active Substance: ACYCLOVIR
     Indication: PROPHYLAXIS
     Dosage: DOSAGE FORM: UNSPECIFIED
     Route: 065
     Dates: start: 20151205, end: 20151216
  81. ADCAL D3 [Concomitant]
     Active Substance: CALCIUM CARBONATE\CHOLECALCIFEROL
     Indication: HYPOCALCAEMIA
     Dosage: UNK, DAILY ( DOSAGE FORM: UNSPECIFIED)
     Route: 048
     Dates: start: 20160129
  82. ADCAL D3 [Concomitant]
     Active Substance: CALCIUM CARBONATE\CHOLECALCIFEROL
     Indication: PROPHYLAXIS
  83. DOXYCYCLINE. [Concomitant]
     Active Substance: DOXYCYCLINE
     Indication: PROPHYLAXIS
  84. CLONIDINE. [Concomitant]
     Active Substance: CLONIDINE
     Indication: HYPERTENSION
     Dosage: UNK
     Route: 042

REACTIONS (9)
  - Neuropathy peripheral [Unknown]
  - Sepsis [Recovered/Resolved]
  - Acute coronary syndrome [Recovered/Resolved]
  - Atrial fibrillation [Recovered/Resolved]
  - Peripheral swelling [Unknown]
  - Neutropenia [Unknown]
  - Back pain [Unknown]
  - Lower respiratory tract infection [Unknown]
  - Constipation [Unknown]

NARRATIVE: CASE EVENT DATE: 20151112
